FAERS Safety Report 9804292 (Version 1)
Quarter: 2014Q1

REPORT INFORMATION
  Report Type: Spontaneous
  Country: US (occurrence: US)
  Receive Date: 20140108
  Receipt Date: 20140108
  Transmission Date: 20141002
  Serious: Yes (Hospitalization)
  Sender: FDA-Public Use
  Company Number: US-PFIZER INC-2014003365

PATIENT
  Age: 35 Year
  Sex: Male

DRUGS (4)
  1. VENLAFAXINE HCL [Suspect]
     Indication: ANXIETY DISORDER
     Dosage: 10 TO 15 PILLS PER DAY OF 225 MG EXTENDED RELEASE VENLAFAXINE (DAILY INTAKE RANGE, 2250 TO 3375 MG/D
  2. VENLAFAXINE HCL [Suspect]
     Indication: SCHIZOPHRENIA
  3. CLONAZEPAM [Concomitant]
     Indication: ANXIETY DISORDER
     Dosage: UNK
  4. RISPERIDONE [Concomitant]
     Indication: SCHIZOPHRENIA
     Dosage: UNK, EVERY 2 WEEKS

REACTIONS (2)
  - Overdose [Unknown]
  - Drug abuse [Unknown]
